FAERS Safety Report 6110281-4 (Version None)
Quarter: 2009Q1

REPORT INFORMATION
  Report Type: 
  Country: None (occurrence: None)
  Receive Date: 20090310
  Receipt Date: 20090302
  Transmission Date: 20090719
  Serious: Yes (Other)
  Sender: FDA-Public Use
  Company Number: ES-ROCHE-618201

PATIENT
  Age: 71 Year
  Sex: Female

DRUGS (9)
  1. XENICAL [Suspect]
     Indication: OBESITY
     Dosage: FREQUENCY REPORTED AS DAY.
     Route: 048
     Dates: start: 20090210, end: 20090210
  2. CALCIUM DOBESILATE [Concomitant]
  3. NOLOTIL [Concomitant]
  4. AMLODIPINE [Concomitant]
  5. INDAPAMIDE [Concomitant]
  6. LORAZEPAM [Concomitant]
  7. NEOBRUFEN [Concomitant]
     Dosage: DRUG REPORTED AS NEOBRUFEN RETARD.
  8. NASONEX [Concomitant]
     Dosage: NASAL SPRAY.
  9. INDURGAN [Concomitant]

REACTIONS (2)
  - HYPERTENSION [None]
  - VISION BLURRED [None]
